FAERS Safety Report 14978145 (Version 7)
Quarter: 2018Q4

REPORT INFORMATION
  Report Type: Report from Study
  Country: CN (occurrence: CN)
  Receive Date: 20180606
  Receipt Date: 20181102
  Transmission Date: 20190204
  Serious: Yes (Hospitalization)
  Sender: FDA-Public Use
  Company Number: CN-ROCHE-2101391

PATIENT
  Age: 60 Year
  Sex: Female
  Weight: 59 kg

DRUGS (66)
  1. ENTERAL NUTRITIONAL EMULSION (TPF) [Concomitant]
     Route: 065
     Dates: end: 20180517
  2. DEXAMETHASONE ACETATE [Concomitant]
     Active Substance: DEXAMETHASONE ACETATE
     Route: 065
     Dates: start: 20180522, end: 20180523
  3. METOCLOPRAMIDE DIHYDROCHLORIDE [Concomitant]
     Route: 065
     Dates: start: 20180601, end: 20180601
  4. PALONOSETRON HYDROCHLORIDE. [Concomitant]
     Active Substance: PALONOSETRON HYDROCHLORIDE
     Route: 065
     Dates: start: 20180523, end: 20180523
  5. ONDANSETRON HYDROCHLORIDE. [Concomitant]
     Active Substance: ONDANSETRON HYDROCHLORIDE
     Route: 065
     Dates: start: 20180516, end: 20180521
  6. ONDANSETRON HYDROCHLORIDE. [Concomitant]
     Active Substance: ONDANSETRON HYDROCHLORIDE
     Route: 065
     Dates: start: 20180602, end: 20180603
  7. GLUCOSE [Concomitant]
     Active Substance: DEXTROSE
     Route: 065
     Dates: start: 20180411, end: 20180412
  8. MAGNESIUM ISOGLYCYRRHIZINATE [Concomitant]
     Active Substance: MAGNESIUM ISOGLYCYRRHIZINATE
     Route: 065
     Dates: start: 20180427, end: 20180524
  9. INSULIN [Concomitant]
     Active Substance: INSULIN NOS
     Route: 065
     Dates: start: 20180515, end: 20180518
  10. ENTERAL NUTRITIONAL EMULSION (TPF) [Concomitant]
     Route: 065
     Dates: start: 20180615, end: 20180620
  11. HEPARIN SODIUM. [Concomitant]
     Active Substance: HEPARIN SODIUM
     Route: 065
     Dates: start: 20180312, end: 20180312
  12. TRANSMETIL [Concomitant]
     Active Substance: ADEMETIONINE
     Route: 065
     Dates: start: 20180411, end: 20180412
  13. GLUCOSE [Concomitant]
     Active Substance: DEXTROSE
     Route: 065
     Dates: start: 20180523, end: 20180523
  14. GLUCOSE [Concomitant]
     Active Substance: DEXTROSE
     Route: 065
     Dates: start: 20180518, end: 20180523
  15. INSULIN [Concomitant]
     Active Substance: INSULIN NOS
     Route: 065
     Dates: start: 20180508, end: 20180514
  16. INSULIN [Concomitant]
     Active Substance: INSULIN NOS
     Route: 065
     Dates: start: 20180518, end: 20180523
  17. INSULIN [Concomitant]
     Active Substance: INSULIN NOS
     Route: 065
     Dates: start: 20180604, end: 20180615
  18. POTASSIUM CHLORIDE. [Concomitant]
     Active Substance: POTASSIUM CHLORIDE
     Route: 065
     Dates: start: 20180427, end: 20180524
  19. OMEGAVEN (FISH OIL) [Concomitant]
     Route: 065
     Dates: start: 20180518, end: 20180523
  20. PROMETHAZINE HYDROCHLORIDE. [Concomitant]
     Active Substance: PROMETHAZINE HYDROCHLORIDE
     Route: 065
     Dates: start: 20180523, end: 20180523
  21. METOCLOPRAMIDE DIHYDROCHLORIDE [Concomitant]
     Route: 065
     Dates: start: 20180515, end: 20180515
  22. DEXAMETHASONE SODIUM PHOSPHATE. [Concomitant]
     Active Substance: DEXAMETHASONE SODIUM PHOSPHATE
     Route: 042
     Dates: start: 20180523, end: 20180523
  23. ONDANSETRON HYDROCHLORIDE. [Concomitant]
     Active Substance: ONDANSETRON HYDROCHLORIDE
     Route: 065
     Dates: start: 20180607, end: 20180610
  24. GLUCOSE [Concomitant]
     Active Substance: DEXTROSE
     Route: 065
     Dates: start: 20180517, end: 20180517
  25. MOSAPRIDE CITRATE [Concomitant]
     Active Substance: MOSAPRIDE CITRATE
     Route: 065
     Dates: start: 20180517, end: 20180525
  26. MOSAPRIDE CITRATE [Concomitant]
     Active Substance: MOSAPRIDE CITRATE
     Route: 065
     Dates: start: 20180604, end: 20180611
  27. COMPOUND AMINO ACID 18AA [Concomitant]
     Route: 065
     Dates: start: 20180518, end: 20180523
  28. IRON SUCROSE [Concomitant]
     Active Substance: IRON SUCROSE
     Indication: ANAEMIA
     Route: 065
     Dates: start: 20180531, end: 20180615
  29. INDOMETACIN [Concomitant]
     Active Substance: INDOMETHACIN
     Route: 065
     Dates: start: 20180530, end: 20180530
  30. NIFEREX (POLYSACCHARIDE-IRON COMPLEX) [Concomitant]
     Active Substance: IRON\POLYSACCHARIDES
     Indication: ANAEMIA
     Route: 065
     Dates: start: 20180531, end: 20180604
  31. ATEZOLIZUMAB. [Suspect]
     Active Substance: ATEZOLIZUMAB
     Indication: OVARIAN CANCER
     Dosage: DATE OF MOST RECENT DOSE OF ATEZOLIZUMAB PRIOR TO GRANULOCYTOSIS ONSET 23/MAY/2018.
     Route: 042
     Dates: start: 20180313
  32. PACLITAXEL. [Suspect]
     Active Substance: PACLITAXEL
     Indication: OVARIAN CANCER
     Dosage: DATE OF MOST RECENT DOSE OF PACLITAXEL PRIOR TO GRANULOCYTOSIS ONSET 23/MAY/2018, 270 MG?DATE OF MOS
     Route: 042
     Dates: start: 20180313
  33. UBENIMEX [Concomitant]
     Active Substance: UBENIMEX
     Route: 065
     Dates: start: 20180305, end: 20180319
  34. ENTERAL NUTRITIONAL EMULSION (TPF) [Concomitant]
     Indication: NUTRITIONAL SUPPLEMENTATION
     Route: 065
     Dates: start: 20180305, end: 20180315
  35. LIDOCAINE HYDROCHLORIDE. [Concomitant]
     Active Substance: LIDOCAINE HYDROCHLORIDE
     Indication: LOCAL ANAESTHESIA
     Route: 065
     Dates: start: 20180312, end: 20180312
  36. DEXAMETHASONE ACETATE [Concomitant]
     Active Substance: DEXAMETHASONE ACETATE
     Route: 048
     Dates: start: 20180312, end: 20180313
  37. PROMETHAZINE HYDROCHLORIDE. [Concomitant]
     Active Substance: PROMETHAZINE HYDROCHLORIDE
     Route: 065
     Dates: start: 20180313, end: 20180313
  38. METOCLOPRAMIDE DIHYDROCHLORIDE [Concomitant]
     Route: 065
     Dates: start: 20180313, end: 20180313
  39. METOCLOPRAMIDE DIHYDROCHLORIDE [Concomitant]
     Route: 065
     Dates: start: 20180523, end: 20180523
  40. PALONOSETRON HYDROCHLORIDE. [Concomitant]
     Active Substance: PALONOSETRON HYDROCHLORIDE
     Route: 065
     Dates: start: 20180313, end: 20180313
  41. SODIUM CHLORIDE. [Concomitant]
     Active Substance: SODIUM CHLORIDE
     Route: 065
     Dates: start: 20180313, end: 20180313
  42. SODIUM CHLORIDE. [Concomitant]
     Active Substance: SODIUM CHLORIDE
     Route: 065
     Dates: start: 20180604, end: 20180615
  43. LANSOPRAZOLE. [Concomitant]
     Active Substance: LANSOPRAZOLE
     Route: 065
     Dates: start: 20180313, end: 20180408
  44. LANSOPRAZOLE. [Concomitant]
     Active Substance: LANSOPRAZOLE
     Route: 065
     Dates: start: 20180427, end: 20180524
  45. LANSOPRAZOLE. [Concomitant]
     Active Substance: LANSOPRAZOLE
     Route: 065
     Dates: start: 20180403, end: 20180408
  46. GLUCOSE [Concomitant]
     Active Substance: DEXTROSE
     Route: 065
     Dates: start: 20180403, end: 20180408
  47. INDOMETACIN [Concomitant]
     Active Substance: INDOMETHACIN
     Route: 065
     Dates: start: 20180605, end: 20180606
  48. BENZALKONIUM CHLORIDE. [Concomitant]
     Active Substance: BENZALKONIUM CHLORIDE
     Route: 065
     Dates: start: 20180305, end: 20180418
  49. DEXAMETHASONE SODIUM PHOSPHATE. [Concomitant]
     Active Substance: DEXAMETHASONE SODIUM PHOSPHATE
     Route: 042
     Dates: start: 20180605, end: 20180605
  50. PANTOPRAZOLE SODIUM. [Concomitant]
     Active Substance: PANTOPRAZOLE SODIUM
     Route: 065
     Dates: start: 20180529, end: 20180615
  51. ADEMETIONINE 1,4-BUTANEDISULFONATE [Concomitant]
     Route: 065
     Dates: start: 20180529, end: 20180615
  52. BEVACIZUMAB. [Suspect]
     Active Substance: BEVACIZUMAB
     Indication: OVARIAN CANCER
     Dosage: DATE OF MOST RECENT DOSE OF BEVACIZUMAB PRIOR TO GRANULOCYTOSIS ONSET 23/MAY/2018, 975 MG
     Route: 042
     Dates: start: 20180412
  53. METOCLOPRAMIDE DIHYDROCHLORIDE [Concomitant]
     Route: 065
     Dates: start: 20180516, end: 20180516
  54. CARBOPLATIN. [Suspect]
     Active Substance: CARBOPLATIN
     Indication: OVARIAN CANCER
     Dosage: RECEIVED AT A DOSE TO ACHIEVE A TARGET AREA UNDER THE CURVE (AUC) OF 6 MILLIGRAMS PER MILLILITER*MIN
     Route: 042
     Dates: start: 20180313
  55. GLUCOSE [Concomitant]
     Active Substance: DEXTROSE
     Route: 065
     Dates: start: 20180313, end: 20180313
  56. POTASSIUM CHLORIDE. [Concomitant]
     Active Substance: POTASSIUM CHLORIDE
     Route: 065
     Dates: start: 20180601, end: 20180604
  57. IMIPENEM AND CILASTATIN SODIUM [Concomitant]
     Active Substance: CILASTATIN SODIUM\IMIPENEM
     Route: 065
     Dates: start: 20180607, end: 20180615
  58. MEGESTROL ACETATE. [Concomitant]
     Active Substance: MEGESTROL ACETATE
     Route: 065
     Dates: start: 20180611, end: 20180618
  59. METOCLOPRAMIDE DIHYDROCHLORIDE [Concomitant]
     Route: 065
     Dates: start: 20180512, end: 20180512
  60. METOCLOPRAMIDE DIHYDROCHLORIDE [Concomitant]
     Route: 065
     Dates: start: 20180606, end: 20180606
  61. TRANSMETIL [Concomitant]
     Active Substance: ADEMETIONINE
     Route: 065
     Dates: start: 20180313, end: 20180313
  62. DEXAMETHASONE SODIUM PHOSPHATE. [Concomitant]
     Active Substance: DEXAMETHASONE SODIUM PHOSPHATE
     Route: 042
     Dates: start: 20180401, end: 20180401
  63. ONDANSETRON HYDROCHLORIDE. [Concomitant]
     Active Substance: ONDANSETRON HYDROCHLORIDE
     Route: 065
     Dates: start: 20180313, end: 20180313
  64. INSULIN [Concomitant]
     Active Substance: INSULIN NOS
     Route: 065
     Dates: start: 20180427, end: 20180507
  65. POTASSIUM CHLORIDE. [Concomitant]
     Active Substance: POTASSIUM CHLORIDE
     Route: 065
     Dates: start: 20180604, end: 20180715
  66. RED BLOOD CELLS [Concomitant]
     Active Substance: HUMAN RED BLOOD CELL
     Indication: ANAEMIA
     Route: 065
     Dates: start: 20180605, end: 20180605

REACTIONS (2)
  - Granulocytosis [Recovered/Resolved]
  - Platelet count decreased [Recovered/Resolved]

NARRATIVE: CASE EVENT DATE: 20180320
